FAERS Safety Report 9204943 (Version 1)
Quarter: 2013Q2

REPORT INFORMATION
  Report Type: Spontaneous
  Country: US (occurrence: None)
  Receive Date: 20130401
  Receipt Date: 20130401
  Transmission Date: 20140414
  Serious: Yes (Life-Threatening, Hospitalization, Disabling)
  Sender: FDA-Public Use
  Company Number: None

PATIENT
  Age: 52 Year
  Sex: Male
  Weight: 122.7 kg

DRUGS (1)
  1. HEPARIN\SODIUM CHLORIDE [Suspect]
     Dosage: 2200 UNITS PER HOUR IV
     Route: 042
     Dates: start: 20121215, end: 20121219

REACTIONS (3)
  - Leg amputation [None]
  - Thrombosis [None]
  - Heparin-induced thrombocytopenia [None]
